FAERS Safety Report 18908335 (Version 2)
Quarter: 2024Q4

REPORT INFORMATION
  Report Type: Report from Study
  Country: DE (occurrence: DE)
  Receive Date: 20210218
  Receipt Date: 20241128
  Transmission Date: 20250114
  Serious: Yes (Other)
  Sender: AUROBINDO
  Company Number: DE-ADIENNEP-2021AD000024

PATIENT
  Age: 2 Year
  Sex: Female

DRUGS (5)
  1. FLUDARABINE [Suspect]
     Active Substance: FLUDARABINE PHOSPHATE
     Indication: Allogenic stem cell transplantation
     Dosage: UNK
     Route: 065
  2. MELPHALAN [Suspect]
     Active Substance: MELPHALAN
     Indication: Allogenic stem cell transplantation
     Dosage: UNK
     Route: 065
  3. MYCOPHENOLATE MOFETIL [Suspect]
     Active Substance: MYCOPHENOLATE MOFETIL
     Indication: Prophylaxis against graft versus host disease
     Dosage: 20.6 X 10X6/KG, CD 34
     Route: 065
  4. THIOTEPA [Suspect]
     Active Substance: THIOTEPA
     Indication: Allogenic stem cell transplantation
     Dosage: UNK
     Route: 065
  5. THYMOCYTE IMMUNE GLOBULIN NOS [Suspect]
     Active Substance: THYMOCYTE IMMUNE GLOBULIN NOS
     Indication: Prophylaxis against graft versus host disease
     Dosage: 10 MILLIGRAM/KILOGRAM (3X10 MG/KG)
     Route: 065

REACTIONS (3)
  - Adenovirus infection [Unknown]
  - Viraemia [Unknown]
  - Cytomegalovirus infection reactivation [Unknown]
